FAERS Safety Report 5503122-7 (Version None)
Quarter: 2007Q4

REPORT INFORMATION
  Report Type: 
  Country: None (occurrence: None)
  Receive Date: 20071029
  Receipt Date: 20071029
  Transmission Date: 20080405
  Serious: Yes (Hospitalization)
  Sender: FDA-Public Use
  Company Number: None

PATIENT
  Sex: Female

DRUGS (1)
  1. MYFORTIC [Suspect]

REACTIONS (10)
  - BIOPSY SITE UNSPECIFIED ABNORMAL [None]
  - COMPLICATIONS OF TRANSPLANTED KIDNEY [None]
  - COUGH [None]
  - FIBROSIS [None]
  - FISTULA [None]
  - HAEMODIALYSIS [None]
  - ILL-DEFINED DISORDER [None]
  - KIDNEY TRANSPLANT REJECTION [None]
  - THROMBOSIS [None]
  - TRANSPLANT FAILURE [None]
